FAERS Safety Report 7644456-X (Version None)
Quarter: 2011Q3

REPORT INFORMATION
  Report Type: 
  Country: None (occurrence: None)
  Receive Date: 20110725
  Receipt Date: 20110708
  Transmission Date: 20111222
  Serious: Yes (Other)
  Sender: FDA-Public Use
  Company Number: AUR-APL-2011-02476

PATIENT
  Age: 28 Year
  Sex: Male

DRUGS (7)
  1. VALPROATE SODIUM [Concomitant]
  2. MIRTAZAPINE [Suspect]
     Indication: PRODUCT USED FOR UNKNOWN INDICATION
     Dates: end: 20110504
  3. CLOZARIL [Suspect]
     Indication: SCHIZOPHRENIA
     Dosage: 800 MG (800 MG 1 IN 1 D), ORAL
     Route: 048
     Dates: start: 20060902, end: 20110419
  4. OMACOR [Concomitant]
  5. HYOSCINE HBR HYT [Concomitant]
  6. ARIPIPRAZOLE [Concomitant]
  7. CLONAZEPAM [Concomitant]

REACTIONS (2)
  - NEUTROPENIA [None]
  - WHITE BLOOD CELL COUNT DECREASED [None]
